FAERS Safety Report 20883282 (Version 1)
Quarter: 2022Q2

REPORT INFORMATION
  Report Type: Spontaneous
  Country: US (occurrence: None)
  Receive Date: 20220526
  Receipt Date: 20220526
  Transmission Date: 20220721
  Serious: Yes (Disabling)
  Sender: FDA-Public Use
  Company Number: None

PATIENT
  Age: 47 Year
  Sex: Female
  Weight: 58.5 kg

DRUGS (20)
  1. EVUSHELD [Suspect]
     Active Substance: CILGAVIMAB\TIXAGEVIMAB
     Indication: COVID-19 prophylaxis
     Dosage: OTHER QUANTITY : 2 INJECTION(S);?OTHER FREQUENCY : 1X INJECTION;?
     Route: 030
     Dates: start: 20220518, end: 20220518
  2. RESTASIS [Concomitant]
     Active Substance: CYCLOSPORINE
  3. MESTINON [Concomitant]
     Active Substance: PYRIDOSTIGMINE BROMIDE
  4. DULOXETINE [Concomitant]
     Active Substance: DULOXETINE
  5. PREGABALIN [Concomitant]
     Active Substance: PREGABALIN
  6. PHENERGAN [Concomitant]
     Active Substance: PROMETHAZINE HYDROCHLORIDE
  7. PREDNISONE [Concomitant]
     Active Substance: PREDNISONE
  8. REMICADE [Concomitant]
     Active Substance: INFLIXIMAB
  9. UBIQUINOL [Concomitant]
     Active Substance: UBIQUINOL
  10. CARNITINE [Concomitant]
     Active Substance: CARNITINE
  11. D-RIBOSE [Concomitant]
  12. nash [Concomitant]
  13. ALPHA LIPOIC ACID [Concomitant]
  14. vitamin d [Concomitant]
  15. MAGNESIUM OXIDE [Concomitant]
     Active Substance: MAGNESIUM OXIDE
  16. VITAMIN C [Concomitant]
     Active Substance: ASCORBIC ACID
  17. PROBIOTICS NOS [Concomitant]
     Active Substance: PROBIOTICS NOS
  18. GRAPEFRUIT SEED EXTRACT [Concomitant]
     Active Substance: GRAPEFRUIT SEED EXTRACT
  19. CLARITIN [Concomitant]
     Active Substance: LORATADINE
  20. IBUPROFEN [Concomitant]
     Active Substance: IBUPROFEN

REACTIONS (14)
  - Arthralgia [None]
  - Pain in extremity [None]
  - Headache [None]
  - Nausea [None]
  - Eye pain [None]
  - Arthralgia [None]
  - Pain in extremity [None]
  - Bedridden [None]
  - Arthralgia [None]
  - Neck pain [None]
  - Arthralgia [None]
  - Pain in jaw [None]
  - Arthralgia [None]
  - Eating disorder [None]

NARRATIVE: CASE EVENT DATE: 20220519
